FAERS Safety Report 11831489 (Version 1)
Quarter: 2015Q4

REPORT INFORMATION
  Report Type: Spontaneous
  Country: US (occurrence: None)
  Receive Date: 20151211
  Receipt Date: 20151211
  Transmission Date: 20160305
  Serious: No
  Sender: FDA-Public Use
  Company Number: None

PATIENT
  Age: 46 Year
  Sex: Male
  Weight: 63.96 kg

DRUGS (1)
  1. MIRVASO [Suspect]
     Active Substance: BRIMONIDINE TARTRATE
     Indication: ROSACEA

REACTIONS (5)
  - Stress [None]
  - Erythema [None]
  - Condition aggravated [None]
  - Impaired work ability [None]
  - Pallor [None]

NARRATIVE: CASE EVENT DATE: 20151209
